FAERS Safety Report 8548354-9 (Version None)
Quarter: 2012Q3

REPORT INFORMATION
  Report Type: 
  Country: None (occurrence: None)
  Receive Date: 20120730
  Receipt Date: 20120725
  Transmission Date: 20120928
  Serious: Yes (Death)
  Sender: FDA-Public Use
  Company Number: BR-JNJFOC-20120713311

PATIENT
  Sex: Male

DRUGS (2)
  1. GALANTAMINE HYDROBROMIDE [Suspect]
     Indication: DEMENTIA ALZHEIMER'S TYPE
     Route: 065
     Dates: end: 20120101
  2. UNKNOWN MEDICATION [Concomitant]
     Indication: CARDIAC DISORDER
     Route: 065

REACTIONS (1)
  - MYOCARDIAL INFARCTION [None]
